FAERS Safety Report 4733045-2 (Version None)
Quarter: 2005Q3

REPORT INFORMATION
  Report Type: 
  Country: None (occurrence: None)
  Receive Date: 20050725
  Receipt Date: 20040720
  Transmission Date: 20060218
  Serious: Yes (Death, Other)
  Sender: FDA-Public Use
  Company Number: USA-2004-0016111

PATIENT
  Age: 47 Year
  Sex: Male
  Weight: 59.9 kg

DRUGS (9)
  1. MORPHINE SULFATE [Suspect]
  2. COCAINE (COCAINE) [Suspect]
  3. PHENOBARBITAL TAB [Suspect]
  4. BENZODIAZEPINE DERIVATIVES [Suspect]
  5. BARBITURATES [Suspect]
  6. DIAZEPAM [Suspect]
  7. OXAZEPAM [Suspect]
  8. PRIMIDONE [Suspect]
  9. TEMAZEPAM [Suspect]

REACTIONS (3)
  - ACCIDENTAL OVERDOSE [None]
  - MULTIPLE DRUG OVERDOSE [None]
  - POLYSUBSTANCE ABUSE [None]
